FAERS Safety Report 8509876-X (Version None)
Quarter: 2012Q3

REPORT INFORMATION
  Report Type: 
  Country: None (occurrence: None)
  Receive Date: 20120713
  Receipt Date: 20120703
  Transmission Date: 20120928
  Serious: Yes (Hospitalization)
  Sender: FDA-Public Use
  Company Number: FR-JNJFOC-20120701950

PATIENT
  Age: 56 Year
  Sex: Female

DRUGS (6)
  1. ACETAMINOPHEN [Concomitant]
     Indication: PRODUCT USED FOR UNKNOWN INDICATION
     Route: 065
  2. DURAGESIC-100 [Suspect]
     Route: 062
     Dates: end: 20111006
  3. PROZAC [Concomitant]
     Indication: PRODUCT USED FOR UNKNOWN INDICATION
     Route: 065
  4. MORPHINE SULFATE [Suspect]
     Indication: NEUROBLASTOMA
     Route: 065
     Dates: end: 20111006
  5. DURAGESIC-100 [Suspect]
     Indication: NEUROBLASTOMA
     Route: 062
  6. ALPRAZOLAM [Suspect]
     Indication: PRODUCT USED FOR UNKNOWN INDICATION
     Route: 065
     Dates: end: 20111006

REACTIONS (5)
  - RENAL FAILURE ACUTE [None]
  - HEPATIC ENCEPHALOPATHY [None]
  - SEPTIC SHOCK [None]
  - COMA [None]
  - CYTOLYTIC HEPATITIS [None]
